FAERS Safety Report 6263975-4 (Version None)
Quarter: 2009Q3

REPORT INFORMATION
  Report Type: 
  Country: None (occurrence: None)
  Receive Date: 20090701
  Receipt Date: 20090317
  Transmission Date: 20100115
  Serious: Yes (Other)
  Sender: FDA-Public Use
  Company Number: 188358USA

PATIENT

DRUGS (1)
  1. LAMOTRIGINE [Suspect]
     Indication: BIPOLAR DISORDER
     Dosage: (75 MG) , ORAL
     Route: 048
     Dates: start: 20081121, end: 20081123

REACTIONS (3)
  - BIPOLAR DISORDER [None]
  - HEADACHE [None]
  - MOOD ALTERED [None]
